FAERS Safety Report 16982684 (Version 3)
Quarter: 2021Q2

REPORT INFORMATION
  Report Type: Spontaneous
  Country: MX (occurrence: MX)
  Receive Date: 20191101
  Receipt Date: 20210406
  Transmission Date: 20210716
  Serious: Yes (Hospitalization, Other)
  Sender: FDA-Public Use
  Company Number: MX-SUN PHARMACEUTICAL INDUSTRIES LTD-2019R1-225524

PATIENT
  Age: 27 Year
  Sex: Female

DRUGS (1)
  1. VERAPAMIL [Suspect]
     Active Substance: VERAPAMIL HYDROCHLORIDE
     Indication: PRODUCT USED FOR UNKNOWN INDICATION
     Dosage: 20 PILLS
     Route: 048

REACTIONS (10)
  - Hypotension [Recovering/Resolving]
  - Gastrointestinal necrosis [Unknown]
  - Somnolence [Unknown]
  - Thrombosis [Unknown]
  - Overdose [Unknown]
  - Tachypnoea [Unknown]
  - Metabolic acidosis [Unknown]
  - Suicide attempt [Unknown]
  - Tachycardia [Unknown]
  - Haemorrhagic infarction [Unknown]
